FAERS Safety Report 5070552-X (Version None)
Quarter: 2006Q3

REPORT INFORMATION
  Report Type: 
  Country: None (occurrence: None)
  Receive Date: 20060714
  Receipt Date: 20060421
  Transmission Date: 20061208
  Serious: No
  Sender: FDA-Public Use
  Company Number: 2006SP001775

PATIENT
  Age: 41 Year
  Sex: Female
  Weight: 54.4316 kg

DRUGS (3)
  1. LUNESTA [Suspect]
     Indication: INSOMNIA
     Dosage: 4 MG;ORAL
     Route: 048
     Dates: start: 20060417, end: 20060417
  2. CLONAZEPAM [Concomitant]
  3. CELEBREX [Concomitant]

REACTIONS (6)
  - ABNORMAL BEHAVIOUR [None]
  - CRYING [None]
  - DYSGEUSIA [None]
  - INSOMNIA [None]
  - PAIN [None]
  - THIRST [None]
